FAERS Safety Report 16134786 (Version 10)
Quarter: 2020Q2

REPORT INFORMATION
  Report Type: Report from Study
  Country: US (occurrence: US)
  Receive Date: 20190329
  Receipt Date: 20200522
  Transmission Date: 20200713
  Serious: Yes (Other)
  Sender: FDA-Public Use
  Company Number: US-PFIZER INC-2019097008

PATIENT
  Age: 62 Year
  Sex: Female

DRUGS (2)
  1. IBRANCE [Suspect]
     Active Substance: PALBOCICLIB
     Indication: BREAST CANCER METASTATIC
     Dosage: 125 MG, CYCLIC (DAILY 21 DAYS ON, 7 DAYS OFF)
     Route: 048
     Dates: start: 20190225
  2. NATPARA (PARATHYROID HORMONE) [Concomitant]
     Active Substance: PARATHYROID HORMONE
     Indication: HYPOPARATHYROIDISM
     Dosage: 75 MG, DAILY
     Route: 058
     Dates: start: 20181017

REACTIONS (32)
  - Dry eye [Unknown]
  - Insomnia [Unknown]
  - Arthralgia [Unknown]
  - Chromaturia [Unknown]
  - Leukopenia [Recovered/Resolved]
  - Nausea [Not Recovered/Not Resolved]
  - Fatigue [Recovered/Resolved]
  - Hypoparathyroidism [Unknown]
  - Xerosis [Unknown]
  - Hot flush [Not Recovered/Not Resolved]
  - Hypercalcaemia [Not Recovered/Not Resolved]
  - Respiratory tract infection [Recovered/Resolved]
  - Discomfort [Unknown]
  - Erythema [Unknown]
  - Gastrointestinal disorder [Unknown]
  - Bone marrow failure [Recovered/Resolved]
  - Abdominal pain upper [Unknown]
  - Oropharyngeal pain [Recovered/Resolved]
  - Upper respiratory tract infection [Unknown]
  - Diarrhoea [Unknown]
  - Thrombocytopenia [Recovered/Resolved]
  - Respiratory tract infection [Recovered/Resolved]
  - Dyspepsia [Unknown]
  - Dry skin [Unknown]
  - Burning sensation [Not Recovered/Not Resolved]
  - Fine motor skill dysfunction [Unknown]
  - Night sweats [Unknown]
  - Fungal infection [Recovered/Resolved]
  - Alopecia [Not Recovered/Not Resolved]
  - Madarosis [Not Recovered/Not Resolved]
  - Hypocalcaemia [Unknown]
  - Disturbance in attention [Recovered/Resolved]

NARRATIVE: CASE EVENT DATE: 2019
